FAERS Safety Report 14913882 (Version 2)
Quarter: 2018Q2

REPORT INFORMATION
  Report Type: Spontaneous
  Country: JP (occurrence: JP)
  Receive Date: 20180518
  Receipt Date: 20180601
  Transmission Date: 20180711
  Serious: Yes (Other)
  Sender: FDA-Public Use
  Company Number: JP-009507513-1804JPN000953J

PATIENT
  Age: 77 Year
  Sex: Female
  Weight: 56 kg

DRUGS (1)
  1. JANUVIA [Suspect]
     Active Substance: SITAGLIPTIN PHOSPHATE
     Indication: DIABETES MELLITUS
     Dosage: 50 MG, QD
     Route: 048
     Dates: start: 20170609, end: 20180409

REACTIONS (1)
  - Rheumatoid arthritis [Recovered/Resolved]

NARRATIVE: CASE EVENT DATE: 20170623
